FAERS Safety Report 16718886 (Version 1)
Quarter: 2019Q3

REPORT INFORMATION
  Report Type: Spontaneous
  Country: DE (occurrence: DE)
  Receive Date: 20190820
  Receipt Date: 20190820
  Transmission Date: 20191005
  Serious: Yes (Hospitalization)
  Sender: FDA-Public Use
  Company Number: DE-TEVA-2019-DE-1093999

PATIENT
  Age: 37 Year
  Sex: Female
  Weight: 60 kg

DRUGS (6)
  1. METOCLOPRAMID [Concomitant]
     Active Substance: METOCLOPRAMIDE
     Dosage: 10 MG, 0.5-0.5-0.5-0, INTAKE UNTIL 10.06.2018, TABLETS
     Route: 048
  2. RIOPAN [Concomitant]
     Dosage: 1600 MG, 1-1-1-0, INTAKE UNTIL 06.06.2018, GEL
     Route: 048
  3. IBU-LYSINHEXAL 684MG [Suspect]
     Active Substance: IBUPROFEN LYSINE
     Dosage: 684 MG, 1-0-1, TAKE 26.05. TO 28.05.2018, TABLETS
     Route: 048
  4. AUGMENTAN 875/125MG [Suspect]
     Active Substance: AMOXICILLIN
     Dosage: 875|125 MG, 1-0-1-0, TAKE 26.05. TO 04.06.2018, TABLETS
     Route: 048
  5. PANTOPRAZOLE [Suspect]
     Active Substance: PANTOPRAZOLE
     Dosage: 40 MG, 1-0-1-0, INTAKE UNTIL 10.06.2018, TABLETS
     Route: 048
  6. DESIRETT 75 MIKROGRAMM [Concomitant]
     Dosage: 75 ?G, 1-0-0-0, TABLETTEN
     Route: 048

REACTIONS (3)
  - Abdominal pain upper [Unknown]
  - Nausea [Unknown]
  - Vomiting [Unknown]
